FAERS Safety Report 5385201-0 (Version None)
Quarter: 2007Q3

REPORT INFORMATION
  Report Type: 
  Country: None (occurrence: None)
  Receive Date: 20070706
  Receipt Date: 20070706
  Transmission Date: 20080115
  Serious: Yes (Life-Threatening, Hospitalization, Other)
  Sender: FDA-Public Use
  Company Number: None

PATIENT
  Age: 83 Year
  Sex: Female
  Weight: 104.3273 kg

DRUGS (2)
  1. LYRICA [Suspect]
     Indication: PAIN
     Dosage: THREE TIMES DAILY PO
     Route: 048
     Dates: start: 20070610, end: 20070620
  2. LYRICA [Suspect]
     Indication: PERIPHERAL ISCHAEMIA
     Dosage: THREE TIMES DAILY PO
     Route: 048
     Dates: start: 20070610, end: 20070620

REACTIONS (10)
  - ANXIETY [None]
  - ASTHENIA [None]
  - CONFUSIONAL STATE [None]
  - DECUBITUS ULCER [None]
  - DYSSTASIA [None]
  - FEELING ABNORMAL [None]
  - HYPOGLYCAEMIA [None]
  - INCONTINENCE [None]
  - RESTLESSNESS [None]
  - TREMOR [None]
